FAERS Safety Report 4819305-5 (Version None)
Quarter: 2005Q4

REPORT INFORMATION
  Report Type: 
  Country: None (occurrence: None)
  Receive Date: 20051103
  Receipt Date: 20051025
  Transmission Date: 20060501
  Serious: Yes (Other)
  Sender: FDA-Public Use
  Company Number: US-BRISTOL-MYERS SQUIBB COMPANY-13158647

PATIENT
  Age: 56 Year
  Sex: Female

DRUGS (1)
  1. DEFINITY [Suspect]
     Route: 040
     Dates: start: 20051018, end: 20051018

REACTIONS (3)
  - DYSPNOEA [None]
  - EYE SWELLING [None]
  - URTICARIA [None]
